FAERS Safety Report 9745485 (Version 1)
Quarter: 2013Q4

REPORT INFORMATION
  Report Type: Spontaneous
  Country: US (occurrence: US)
  Receive Date: 20131211
  Receipt Date: 20131211
  Transmission Date: 20140711
  Serious: No
  Sender: FDA-Public Use
  Company Number: US-BIOGENIDEC-2013BI087861

PATIENT
  Sex: Female

DRUGS (4)
  1. TECFIDERA [Suspect]
     Indication: MULTIPLE SCLEROSIS
     Route: 048
     Dates: start: 201306, end: 201306
  2. TECFIDERA [Suspect]
     Indication: MULTIPLE SCLEROSIS
     Route: 048
     Dates: start: 201306, end: 20130706
  3. PERCOCET [Concomitant]
  4. TIZANIDINE [Concomitant]

REACTIONS (6)
  - Pain [Unknown]
  - Muscle spasms [Unknown]
  - Stress [Unknown]
  - Sensation of heaviness [Unknown]
  - Mental impairment [Unknown]
  - Pain in extremity [Recovered/Resolved]
